FAERS Safety Report 4515352-1 (Version None)
Quarter: 2004Q4

REPORT INFORMATION
  Report Type: 
  Country: None (occurrence: None)
  Receive Date: 20041029
  Receipt Date: 20040826
  Transmission Date: 20050328
  Serious: No
  Sender: FDA-Public Use
  Company Number: 200416435US

PATIENT
  Sex: Female

DRUGS (2)
  1. TELITHROMYCIN (KETEK) TABLETS [Suspect]
     Indication: BRONCHITIS
     Dosage: 800 MG QD PO
     Route: 048
     Dates: start: 20040801, end: 20040801
  2. ANTIHISTAMINE [Concomitant]

REACTIONS (1)
  - EYE INFLAMMATION [None]
